FAERS Safety Report 5411905-7 (Version None)
Quarter: 2007Q3

REPORT INFORMATION
  Report Type: 
  Country: None (occurrence: None)
  Receive Date: 20070813
  Receipt Date: 20070731
  Transmission Date: 20080115
  Serious: Yes (Hospitalization)
  Sender: FDA-Public Use
  Company Number: FR-JNJFOC-20070600506

PATIENT
  Sex: Female

DRUGS (8)
  1. TRAMADOL HCL [Suspect]
     Route: 048
  2. TRAMADOL HCL [Suspect]
     Route: 048
  3. TRAMADOL HCL [Suspect]
     Indication: PAIN
     Dosage: TOOK FOR 2 YEARS
     Route: 048
  4. STILNOX [Suspect]
     Indication: INSOMNIA
     Route: 048
  5. PLACEBO [Concomitant]
     Route: 065
  6. CORTANCYL [Concomitant]
     Indication: TEMPORAL ARTERITIS
     Route: 065
  7. POTASSIUM CHLORIDE [Concomitant]
     Indication: TEMPORAL ARTERITIS
     Route: 065
  8. FOSAVANCE [Concomitant]
     Indication: TEMPORAL ARTERITIS
     Dosage: 70MG PLUS 70UG
     Route: 065

REACTIONS (3)
  - ANOREXIA [None]
  - DRUG WITHDRAWAL SYNDROME [None]
  - STUPOR [None]
